FAERS Safety Report 23140514 (Version 1)
Quarter: 2023Q4

REPORT INFORMATION
  Report Type: Report from Study
  Country: US (occurrence: US)
  Receive Date: 20231102
  Receipt Date: 20231102
  Transmission Date: 20240110
  Serious: Yes (Other)
  Sender: FDA-Public Use
  Company Number: US-ABBVIE-5433393

PATIENT
  Age: 46 Year
  Sex: Female

DRUGS (1)
  1. HUMIRA [Suspect]
     Active Substance: ADALIMUMAB
     Indication: Psoriasis
     Dosage: FORM STRENGTH: 40 MG?CITRATE FREE
     Route: 058
     Dates: start: 20220730, end: 2023

REACTIONS (4)
  - Nasal septum deviation [Unknown]
  - Psoriasis [Not Recovered/Not Resolved]
  - Sinusitis [Unknown]
  - Aphonia [Unknown]

NARRATIVE: CASE EVENT DATE: 20231023
